FAERS Safety Report 25411836 (Version 1)
Quarter: 2025Q2

REPORT INFORMATION
  Report Type: Spontaneous
  Country: ES (occurrence: ES)
  Receive Date: 20250609
  Receipt Date: 20250609
  Transmission Date: 20250717
  Serious: Yes (Hospitalization)
  Sender: TEVA
  Company Number: None

PATIENT
  Age: 91 Year
  Sex: Female

DRUGS (3)
  1. AZITHROMYCIN [Suspect]
     Active Substance: AZITHROMYCIN
     Indication: Diarrhoea
     Dosage: AZITHROMYCIN 500 MG 3 TABLETS ACUTE 1 BREAKFAST, 3 TABLETS
     Route: 048
     Dates: start: 20241223, end: 20241225
  2. AMOXICILLIN\CLAVULANIC ACID [Suspect]
     Active Substance: AMOXICILLIN\CLAVULANIC ACID
     Indication: Pneumonia
     Dosage: 1 TABLET EVERY 8H, 875 MG/125 MG 30 TABLETS
     Route: 048
     Dates: start: 20241026, end: 20241107
  3. CLINDAMYCIN [Suspect]
     Active Substance: CLINDAMYCIN
     Indication: Cellulitis
     Dosage: CLINDAMYCIN 300 MG 24 CAPSULES ACUTE 1 BREAKFAST, 1 LUNCH, 1 DINNER CELLULITIS, 24 CAPSULES
     Route: 048
     Dates: start: 20241112, end: 20241118

REACTIONS (1)
  - Clostridium difficile colitis [Recovered/Resolved]

NARRATIVE: CASE EVENT DATE: 20241228
